FAERS Safety Report 8973728 (Version 1)
Quarter: 2012Q4

REPORT INFORMATION
  Report Type: 
  Country: BR (occurrence: BR)
  Receive Date: 20121211
  Receipt Date: 20121211
  Transmission Date: 20130627
  Serious: Yes (Hospitalization, Other)
  Sender: FDA-Public Use
  Company Number: BR-PFIZER INC-2012306681

PATIENT
  Age: 61 Year
  Sex: Male

DRUGS (5)
  1. CELEBRA [Suspect]
     Indication: PAIN IN SPINE
     Dosage: 200mg 4x/day (when pain crisis) or 400mg per day (when no crisis)
     Route: 048
  2. CELEBRA [Suspect]
     Indication: LEG PAIN
  3. TEGRETOL [Concomitant]
     Indication: CONVULSION
     Dosage: 400 mg, 2x/day
     Dates: start: 1999
  4. LANSOPRAZOLE [Concomitant]
     Indication: GASTRITIS
     Dosage: 2 tablets a day
  5. LANSOPRAZOLE [Concomitant]
     Indication: REFLUX GASTRITIS

REACTIONS (2)
  - Pain [Unknown]
  - Hyperthyroidism [Unknown]
